FAERS Safety Report 6745785-4 (Version None)
Quarter: 2010Q2

REPORT INFORMATION
  Report Type: 
  Country: None (occurrence: None)
  Receive Date: 20100528
  Receipt Date: 20100518
  Transmission Date: 20101027
  Serious: Yes (Death, Other)
  Sender: FDA-Public Use
  Company Number: JP-JNJFOC-20100508753

PATIENT
  Age: 66 Year
  Sex: Female
  Weight: 45 kg

DRUGS (13)
  1. DOXORUBICIN HCL [Suspect]
     Indication: OVARIAN CANCER RECURRENT
     Route: 042
  2. HACHIAZULE [Concomitant]
     Indication: DRUG USE FOR UNKNOWN INDICATION
     Route: 002
  3. DECADRON [Concomitant]
     Indication: PROPHYLAXIS
     Route: 042
  4. LASIX [Concomitant]
     Indication: DRUG USE FOR UNKNOWN INDICATION
     Route: 042
  5. LASIX [Concomitant]
     Route: 042
  6. RAMELTEON [Concomitant]
     Indication: PROPHYLAXIS
     Route: 048
  7. PRIMPERAN TAB [Concomitant]
     Indication: PROPHYLAXIS
     Route: 048
  8. FUROSEMIDE [Concomitant]
     Indication: DRUG USE FOR UNKNOWN INDICATION
     Route: 048
  9. GASCON [Concomitant]
     Indication: PROPHYLAXIS
     Route: 048
  10. FERRICON [Concomitant]
     Indication: DRUG USE FOR UNKNOWN INDICATION
     Route: 042
  11. AMOXAN [Concomitant]
     Indication: DRUG USE FOR UNKNOWN INDICATION
     Route: 048
  12. AMOXAN [Concomitant]
     Route: 048
  13. FAMOTIDINE [Concomitant]
     Indication: PROPHYLAXIS
     Route: 048

REACTIONS (5)
  - DIZZINESS [None]
  - MALIGNANT NEOPLASM PROGRESSION [None]
  - OVARIAN CANCER [None]
  - PALPITATIONS [None]
  - RENAL IMPAIRMENT [None]
